FAERS Safety Report 18473737 (Version 5)
Quarter: 2021Q1

REPORT INFORMATION
  Report Type: Report from Study
  Country: US (occurrence: US)
  Receive Date: 20201106
  Receipt Date: 20210308
  Transmission Date: 20210419
  Serious: Yes (Hospitalization, Other)
  Sender: FDA-Public Use
  Company Number: US-BIOGEN-2020BI00942538

PATIENT
  Sex: Female

DRUGS (1)
  1. TYSABRI [Suspect]
     Active Substance: NATALIZUMAB
     Indication: MULTIPLE SCLEROSIS
     Dosage: INFUSED FOR OVER 1 HOUR
     Route: 065
     Dates: start: 20140815

REACTIONS (6)
  - Acute kidney injury [Unknown]
  - Septic shock [Unknown]
  - Sepsis [Unknown]
  - Gallbladder disorder [Recovered/Resolved]
  - Pneumonia aspiration [Recovered/Resolved]
  - Pancreatitis [Recovered/Resolved]
